FAERS Safety Report 5424912-5 (Version None)
Quarter: 2007Q3

REPORT INFORMATION
  Report Type: 
  Country: None (occurrence: None)
  Receive Date: 20070824
  Receipt Date: 20070823
  Transmission Date: 20080115
  Serious: Yes (Death, Hospitalization)
  Sender: FDA-Public Use
  Company Number: US-SANOFI-SYNTHELABO-F03200700159

PATIENT
  Sex: Male
  Weight: 122.9 kg

DRUGS (9)
  1. LOVENOX [Concomitant]
     Dosage: UNK
     Route: 065
     Dates: start: 20070406
  2. MOTRIN [Concomitant]
     Dosage: UNK
     Route: 048
     Dates: start: 20070613
  3. WELLBUTRIN [Concomitant]
     Dosage: UNK
     Route: 048
     Dates: start: 20070507
  4. ATIVAN [Concomitant]
     Dosage: UNK
     Route: 048
     Dates: start: 20070409
  5. ALLEGRA [Concomitant]
     Dosage: UNK
     Route: 048
     Dates: start: 20070412
  6. AVASTIN [Suspect]
     Indication: BILE DUCT CANCER
     Route: 042
     Dates: start: 20070507, end: 20070507
  7. CAPECITABINE [Suspect]
     Indication: BILE DUCT CANCER
     Route: 048
     Dates: start: 20070409, end: 20070506
  8. OXALIPLATIN [Suspect]
     Indication: BILE DUCT CANCER
     Route: 042
     Dates: start: 20070507, end: 20070507
  9. CHONDORITAN [Concomitant]
     Dosage: UNK
     Route: 065

REACTIONS (2)
  - FAILURE TO THRIVE [None]
  - HEPATIC FAILURE [None]
